FAERS Safety Report 4771086-X (Version None)
Quarter: 2005Q3

REPORT INFORMATION
  Report Type: 
  Country: None (occurrence: None)
  Receive Date: 20050915
  Receipt Date: 19920326
  Transmission Date: 20060218
  Serious: Yes (Hospitalization)
  Sender: FDA-Public Use
  Company Number: 923080F001

PATIENT
  Age: 46 Year
  Sex: Male

DRUGS (2)
  1. SULPIRIDE [Concomitant]
     Route: 048
     Dates: start: 19860601
  2. MAPROTILINE [Suspect]
     Route: 048
     Dates: start: 19880501, end: 19880822

REACTIONS (4)
  - AZOTAEMIA [None]
  - DISSEMINATED INTRAVASCULAR COAGULATION [None]
  - MYOGLOBINURIA [None]
  - NEUROLEPTIC MALIGNANT SYNDROME [None]
